FAERS Safety Report 7465082-1 (Version None)
Quarter: 2011Q1

REPORT INFORMATION
  Report Type: 
  Country: None (occurrence: None)
  Receive Date: 20110302
  Receipt Date: 20101014
  Transmission Date: 20110831
  Serious: Yes (Disabling)
  Sender: FDA-Public Use
  Company Number: 163-21880-10072782

PATIENT
  Age: 90 Year
  Sex: Male
  Weight: 89.3586 kg

DRUGS (6)
  1. REVLIMID [Suspect]
     Indication: MULTIPLE MYELOMA
     Dosage: 15 MG, 1 IN 1 D, PO, 10 MG, 1 IN 2 D, PO, 10 MG, 1 IN 2 D, PO
     Route: 048
     Dates: start: 20090325
  2. REVLIMID [Suspect]
     Indication: MULTIPLE MYELOMA
     Dosage: 15 MG, 1 IN 1 D, PO, 10 MG, 1 IN 2 D, PO, 10 MG, 1 IN 2 D, PO
     Route: 048
     Dates: start: 20100101
  3. REVLIMID [Suspect]
     Indication: MULTIPLE MYELOMA
     Dosage: 15 MG, 1 IN 1 D, PO, 10 MG, 1 IN 2 D, PO, 10 MG, 1 IN 2 D, PO
     Route: 048
     Dates: start: 20090901
  4. COUMADIN [Concomitant]
  5. HYTRIN [Concomitant]
  6. TIMOLOL MALEATE [Concomitant]

REACTIONS (8)
  - RENAL FAILURE [None]
  - HEARING IMPAIRED [None]
  - AGGRESSION [None]
  - ACCIDENT [None]
  - DIZZINESS [None]
  - ROAD TRAFFIC ACCIDENT [None]
  - CONDITION AGGRAVATED [None]
  - BACK PAIN [None]
